FAERS Safety Report 6194181-X (Version None)
Quarter: 2009Q2

REPORT INFORMATION
  Report Type: 
  Country: None (occurrence: None)
  Receive Date: 20090518
  Receipt Date: 20090512
  Transmission Date: 20091009
  Serious: Yes (Other)
  Sender: FDA-Public Use
  Company Number: GB-MERCK-0905GBR00027

PATIENT
  Sex: Female

DRUGS (9)
  1. FOSAMAX [Suspect]
     Indication: OSTEOPOROSIS
     Route: 048
     Dates: start: 20071201, end: 20081101
  2. ARNICA [Concomitant]
     Route: 065
  3. CALCIUM (UNSPECIFIED) [Concomitant]
     Route: 065
  4. ANAMIRTA PANICULATA [Concomitant]
     Route: 065
  5. COUGH, COLD, AND FLU THERAPIES (UNSPECIFIED) [Concomitant]
     Route: 065
  6. VITAMINS (UNSPECIFIED) [Concomitant]
     Route: 065
  7. OMEGA-3 MARINE TRIGLYCERIDES [Concomitant]
     Route: 065
  8. VITAMIN D (UNSPECIFIED) [Concomitant]
     Route: 065
  9. ZINC (UNSPECIFIED) [Concomitant]
     Route: 065

REACTIONS (6)
  - ALTERED VISUAL DEPTH PERCEPTION [None]
  - EYE PAIN [None]
  - HEADACHE [None]
  - NIGHT BLINDNESS [None]
  - PHOTOPHOBIA [None]
  - VISION BLURRED [None]
